FAERS Safety Report 20135226 (Version 1)
Quarter: 2021Q4

REPORT INFORMATION
  Report Type: Spontaneous
  Country: FR (occurrence: FR)
  Receive Date: 20211201
  Receipt Date: 20211201
  Transmission Date: 20220304
  Serious: Yes (Life-Threatening, Other)
  Sender: FDA-Public Use
  Company Number: FR-ABBVIE-21K-056-4181104-00

PATIENT
  Age: 22 Year
  Sex: Female

DRUGS (4)
  1. DEPAKOTE [Suspect]
     Active Substance: DIVALPROEX SODIUM
     Indication: Suicide attempt
     Route: 048
     Dates: start: 20130820, end: 20130820
  2. ZOLPIDEM TARTRATE [Suspect]
     Active Substance: ZOLPIDEM TARTRATE
     Indication: Suicide attempt
     Route: 048
     Dates: start: 20130820, end: 20130820
  3. RISPERIDONE [Suspect]
     Active Substance: RISPERIDONE
     Indication: Suicide attempt
     Route: 048
     Dates: start: 20130820, end: 20130820
  4. TRANXENE [Suspect]
     Active Substance: CLORAZEPATE DIPOTASSIUM
     Indication: Suicide attempt
     Route: 048
     Dates: start: 20130820, end: 20130820

REACTIONS (4)
  - Hyperlactacidaemia [Recovered/Resolved]
  - Intentional overdose [Unknown]
  - Hyperammonaemia [Recovered/Resolved]
  - Coma [Recovered/Resolved]

NARRATIVE: CASE EVENT DATE: 20130820
